FAERS Safety Report 4612283-3 (Version None)
Quarter: 2005Q2

REPORT INFORMATION
  Report Type: 
  Country: None (occurrence: None)
  Receive Date: 20050308
  Receipt Date: 20050114
  Transmission Date: 20051028
  Serious: Yes (Other)
  Sender: FDA-Public Use
  Company Number: 2004UW25349

PATIENT
  Age: 76 Year
  Sex: Male
  Weight: 74.842 kg

DRUGS (6)
  1. CRESTOR [Suspect]
     Indication: BLOOD CHOLESTEROL INCREASED
     Dosage: 5 MG QOD PO
     Route: 048
     Dates: start: 20040716, end: 20041104
  2. BENICAR [Concomitant]
  3. LASIX [Concomitant]
  4. POTASSIUM CHLORIDE [Concomitant]
  5. DIGITEK [Concomitant]
  6. IMDUR [Concomitant]

REACTIONS (8)
  - ANGIOPLASTY [None]
  - BLOOD CALCIUM INCREASED [None]
  - FATIGUE [None]
  - LIVER TENDERNESS [None]
  - MUSCULAR WEAKNESS [None]
  - MYOCARDIAL CALCIFICATION [None]
  - NAUSEA [None]
  - PAIN [None]
